FAERS Safety Report 24724199 (Version 1)
Quarter: 2024Q4

REPORT INFORMATION
  Report Type: Report from Study
  Country: IN (occurrence: IN)
  Receive Date: 20241211
  Receipt Date: 20241211
  Transmission Date: 20250115
  Serious: Yes (Other)
  Sender: BRISTOL-MYERS SQUIBB COMPANY
  Company Number: IN-BRISTOL-MYERS SQUIBB COMPANY-2024-191700

PATIENT

DRUGS (2)
  1. THALIDOMIDE [Suspect]
     Active Substance: THALIDOMIDE
     Indication: Thalassaemia
     Dosage: (2-2.5 MG/KG/ DAY)
  2. HYDROXYUREA [Suspect]
     Active Substance: HYDROXYUREA
     Indication: Thalassaemia
     Dosage: (15.7PLUS/MINUS3.1 MG/KG/DAY)

REACTIONS (2)
  - Agranulocytosis [Unknown]
  - Somnolence [Unknown]
